FAERS Safety Report 21103209 (Version 1)
Quarter: 2022Q3

REPORT INFORMATION
  Report Type: Spontaneous
  Country: US (occurrence: US)
  Receive Date: 20220720
  Receipt Date: 20220720
  Transmission Date: 20221026
  Serious: Yes (Other)
  Sender: FDA-Public Use
  Company Number: US-ALK-ABELLO A/S-2022AA002337

PATIENT

DRUGS (4)
  1. GRASTEK [Suspect]
     Active Substance: PHLEUM PRATENSE POLLEN
     Indication: Rhinitis allergic
     Dosage: 2800 UNK
     Route: 060
     Dates: start: 20170801, end: 20200826
  2. BUSPIRONE [Concomitant]
     Active Substance: BUSPIRONE HYDROCHLORIDE
  3. MELATONIN [Concomitant]
     Active Substance: MELATONIN
  4. NAPROXEN [Concomitant]
     Active Substance: NAPROXEN

REACTIONS (4)
  - Eosinophilic oesophagitis [Unknown]
  - Dysphagia [Unknown]
  - Oesophageal disorder [Unknown]
  - Gastrooesophageal reflux disease [Unknown]
